FAERS Safety Report 19144654 (Version 1)
Quarter: 2021Q2

REPORT INFORMATION
  Report Type: Spontaneous
  Country: US (occurrence: US)
  Receive Date: 20210415
  Receipt Date: 20210415
  Transmission Date: 20210717
  Serious: Yes (Hospitalization)
  Sender: FDA-Public Use
  Company Number: None

PATIENT
  Sex: Female

DRUGS (16)
  1. ASTAXANTHIN [Concomitant]
     Active Substance: ASTAXANTHIN
  2. MONTELUKAST [Concomitant]
     Active Substance: MONTELUKAST SODIUM
  3. GABAPENTIN. [Concomitant]
     Active Substance: GABAPENTIN
  4. COVID?19 VACCINE NOS. [Suspect]
     Active Substance: COVID-19 VACCINE NOS
  5. ESTRING [Concomitant]
     Active Substance: ESTRADIOL
  6. ROPINROLE [Concomitant]
     Active Substance: ROPINIROLE
  7. ADVAIR HFA [Concomitant]
     Active Substance: FLUTICASONE PROPIONATE\SALMETEROL XINAFOATE
  8. ALBUTEROL. [Concomitant]
     Active Substance: ALBUTEROL
  9. B?12 ACTIVE [Concomitant]
  10. BIOTIN [Concomitant]
     Active Substance: BIOTIN
  11. MAGNESIUM [Concomitant]
     Active Substance: MAGNESIUM
  12. KRILL OIL [Concomitant]
     Active Substance: DIETARY SUPPLEMENT\KRILL OIL
  13. BACLOFEN. [Concomitant]
     Active Substance: BACLOFEN
  14. DALFAMPRIDINE. [Suspect]
     Active Substance: DALFAMPRIDINE
     Indication: MULTIPLE SCLEROSIS
     Dates: start: 20210322
  15. CALCUIM 600 [Concomitant]
  16. METHENAM [Concomitant]

REACTIONS (2)
  - Hospitalisation [None]
  - Unevaluable event [None]
